FAERS Safety Report 14702962 (Version 1)
Quarter: 2018Q2

REPORT INFORMATION
  Report Type: Spontaneous
  Country: FR (occurrence: FR)
  Receive Date: 20180402
  Receipt Date: 20180402
  Transmission Date: 20180711
  Serious: Yes (Other)
  Sender: FDA-Public Use
  Company Number: FR-MERCK KGAA-2044861

PATIENT
  Age: 44 Year
  Sex: Female

DRUGS (1)
  1. NOVOTHYROX [Suspect]
     Active Substance: LEVOTHYROXINE SODIUM
     Indication: POST PROCEDURAL HYPOTHYROIDISM
     Dates: start: 201707

REACTIONS (17)
  - Hot flush [None]
  - Tendonitis [None]
  - Cough [None]
  - Headache [None]
  - Hyporesponsive to stimuli [None]
  - Loss of personal independence in daily activities [None]
  - Insomnia [None]
  - Mood swings [None]
  - Impaired work ability [None]
  - Dyspnoea [None]
  - Palpitations [None]
  - Alopecia [None]
  - Irritability [None]
  - Fatigue [None]
  - Dizziness [None]
  - Blood thyroid stimulating hormone increased [None]
  - Initial insomnia [None]

NARRATIVE: CASE EVENT DATE: 2017
